FAERS Safety Report 19278656 (Version 1)
Quarter: 2021Q2

REPORT INFORMATION
  Report Type: Spontaneous
  Country: US (occurrence: US)
  Receive Date: 20210520
  Receipt Date: 20210520
  Transmission Date: 20210717
  Serious: Yes (Hospitalization)
  Sender: FDA-Public Use
  Company Number: US-MYLANLABS-2021M1029022

PATIENT
  Age: 49 Year
  Sex: Female

DRUGS (3)
  1. COMBIVIR [Suspect]
     Active Substance: LAMIVUDINE\ZIDOVUDINE
     Indication: HIV INFECTION
     Dosage: 1 DOSAGE FORM, QDTAKEN ONCE DAILY INSTEAD OF TWICE DAILY, AS PRESCRIBED
     Route: 065
  2. NEVIRAPINE. [Suspect]
     Active Substance: NEVIRAPINE
     Indication: HIV INFECTION
     Dosage: 200 MILLIGRAM, QDTAKEN ONCE DAILY INSTEAD OF TWICE DAILY, AS PRESCRIBED
     Route: 065
  3. ACICLOVIR [Concomitant]
     Active Substance: ACYCLOVIR
     Indication: GENITAL HERPES
     Route: 065

REACTIONS (2)
  - Treatment noncompliance [Recovered/Resolved]
  - Acute HIV infection [Recovered/Resolved]
